FAERS Safety Report 9368950 (Version 1)
Quarter: 2013Q2

REPORT INFORMATION
  Report Type: Spontaneous
  Country: US (occurrence: None)
  Receive Date: 20130621
  Receipt Date: 20130621
  Transmission Date: 20140414
  Serious: Yes (Death)
  Sender: FDA-Public Use
  Company Number: 1185773

PATIENT
  Age: 70 Year
  Sex: Female

DRUGS (11)
  1. TAMOXIFEN [Suspect]
     Indication: BREAST CANCER
  2. ANASTROZOLE [Concomitant]
  3. RISEDRONATE [Concomitant]
  4. ATROVASTATIN [Concomitant]
  5. LEVOTHYROXINE [Concomitant]
  6. CALCIUM SUPPLEMENTS [Concomitant]
  7. GLUCOSAMINE [Concomitant]
  8. CHONDROITIN [Concomitant]
  9. ASPIRIN [Concomitant]
  10. BIOTIN [Concomitant]
  11. MULTIVITAMIN [Concomitant]

REACTIONS (13)
  - Sarcoma uterus [None]
  - Scan abdomen abnormal [None]
  - Dyspnoea [None]
  - Inferior vena caval occlusion [None]
  - Deep vein thrombosis [None]
  - Metastases to retroperitoneum [None]
  - Metastases to liver [None]
  - Metastases to lung [None]
  - Metastases to spine [None]
  - Jaundice [None]
  - Hypotension [None]
  - Subdural haematoma [None]
  - Hepatic function abnormal [None]
